FAERS Safety Report 6523021-1 (Version None)
Quarter: 2009Q4

REPORT INFORMATION
  Report Type: 
  Country: None (occurrence: None)
  Receive Date: 20091222
  Receipt Date: 20091214
  Transmission Date: 20100525
  Serious: No
  Sender: FDA-Public Use
  Company Number: 20096851

PATIENT
  Age: 10 Year
  Sex: Male

DRUGS (1)
  1. LIORESAL [Suspect]
     Indication: MUSCLE SPASTICITY

REACTIONS (4)
  - DEVICE CONNECTION ISSUE [None]
  - MEDICAL DEVICE COMPLICATION [None]
  - MUSCLE TIGHTNESS [None]
  - SCAR [None]
